FAERS Safety Report 14317452 (Version 5)
Quarter: 2018Q2

REPORT INFORMATION
  Report Type: Spontaneous
  Country: SE (occurrence: SE)
  Receive Date: 20171222
  Receipt Date: 20180510
  Transmission Date: 20180711
  Serious: Yes (Death, Other)
  Sender: FDA-Public Use
  Company Number: SE-AUROBINDO-AUR-APL-2017-46492

PATIENT
  Age: 30 Year
  Sex: Male

DRUGS (137)
  1. ZOLPIDEM [Suspect]
     Active Substance: ZOLPIDEM\ZOLPIDEM TARTRATE
     Indication: PRODUCT USED FOR UNKNOWN INDICATION
     Dosage: ()
     Route: 065
  2. ZOLPIDEM [Interacting]
     Active Substance: ZOLPIDEM\ZOLPIDEM TARTRATE
     Dosage: ()
     Route: 048
  3. SERTRALINE [Interacting]
     Active Substance: SERTRALINE HYDROCHLORIDE
     Dosage: ()
     Route: 065
  4. SERTRALINE [Interacting]
     Active Substance: SERTRALINE HYDROCHLORIDE
     Dosage: ()
     Route: 065
  5. PARACETAMOL [Interacting]
     Active Substance: ACETAMINOPHEN
     Dosage: UNK ()
     Route: 065
  6. PARACETAMOL [Interacting]
     Active Substance: ACETAMINOPHEN
     Dosage: UNK ()
     Route: 065
  7. PARACETAMOL [Interacting]
     Active Substance: ACETAMINOPHEN
     Dosage: UNK ()
     Route: 065
  8. NANDROLONE [Interacting]
     Active Substance: NANDROLONE
     Dosage: UNK ()
     Route: 065
  9. NANDROLONE [Interacting]
     Active Substance: NANDROLONE
     Dosage: ()
  10. CARISOPRODOL. [Interacting]
     Active Substance: CARISOPRODOL
     Dosage: ()
     Route: 065
  11. MORPHINE SULFATE. [Interacting]
     Active Substance: MORPHINE SULFATE
     Indication: PRODUCT USED FOR UNKNOWN INDICATION
     Dosage: ()
     Route: 065
  12. CODEINE PHOSPHATE [Interacting]
     Active Substance: CODEINE PHOSPHATE
     Dosage: UNK ()
     Route: 065
  13. ALPRAZOLAM. [Interacting]
     Active Substance: ALPRAZOLAM
     Indication: PRODUCT USED FOR UNKNOWN INDICATION
     Dosage: ()
     Route: 065
  14. ALPRAZOLAM. [Interacting]
     Active Substance: ALPRAZOLAM
     Dosage: ()
     Route: 065
  15. ALPRAZOLAM. [Interacting]
     Active Substance: ALPRAZOLAM
     Dosage: UNK ()
     Route: 065
  16. SODIUM OXYBATE. [Interacting]
     Active Substance: SODIUM OXYBATE
     Indication: PRODUCT USED FOR UNKNOWN INDICATION
     Dosage: UNK ()
     Route: 065
  17. GAMMA-HYDROXYBUTYRATE [Interacting]
     Active Substance: 4-HYDROXYBUTANOIC ACID
     Indication: PRODUCT USED FOR UNKNOWN INDICATION
     Dosage: UNK
     Route: 065
  18. GAMMA-HYDROXYBUTYRATE [Interacting]
     Active Substance: 4-HYDROXYBUTANOIC ACID
     Dosage: ()
     Route: 065
  19. DEXTROAMPHET SACCHARAT, AMPHET ASPARTATE, DEXTROAMPHET SULFATE AND AMPHET SULFAT [Suspect]
     Active Substance: AMPHETAMINE ASPARTATE\AMPHETAMINE SULFATE\DEXTROAMPHETAMINE SACCHARATE\DEXTROAMPHETAMINE SULFATE
     Indication: PRODUCT USED FOR UNKNOWN INDICATION
     Dosage: ()
     Route: 065
  20. DEXTROAMPHET SACCHARAT, AMPHET ASPARTATE, DEXTROAMPHET SULFATE AND AMPHET SULFAT [Suspect]
     Active Substance: AMPHETAMINE ASPARTATE\AMPHETAMINE SULFATE\DEXTROAMPHETAMINE SACCHARATE\DEXTROAMPHETAMINE SULFATE
     Dosage: ()
  21. CODEINE [Interacting]
     Active Substance: CODEINE
     Indication: PRODUCT USED FOR UNKNOWN INDICATION
     Dosage: ()
     Route: 065
  22. ZOLPIDEM [Interacting]
     Active Substance: ZOLPIDEM\ZOLPIDEM TARTRATE
     Dosage: UNK ()
     Route: 065
  23. ZOLPIDEM [Interacting]
     Active Substance: ZOLPIDEM\ZOLPIDEM TARTRATE
     Dosage: ()
     Route: 048
  24. ZOLPIDEM [Interacting]
     Active Substance: ZOLPIDEM\ZOLPIDEM TARTRATE
     Dosage: ()
     Route: 048
  25. SERTRALINE [Interacting]
     Active Substance: SERTRALINE HYDROCHLORIDE
     Dosage: UNK ()
     Route: 065
  26. SERTRALINE [Interacting]
     Active Substance: SERTRALINE HYDROCHLORIDE
     Dosage: ()
     Route: 065
  27. PARACETAMOL [Interacting]
     Active Substance: ACETAMINOPHEN
     Indication: PRODUCT USED FOR UNKNOWN INDICATION
     Dosage: ()
     Route: 065
  28. PARACETAMOL [Interacting]
     Active Substance: ACETAMINOPHEN
     Dosage: ()
     Route: 065
  29. NANDROLONE [Interacting]
     Active Substance: NANDROLONE
     Indication: PRODUCT USED FOR UNKNOWN INDICATION
     Dosage: ()
     Route: 065
  30. CARISOPRODOL. [Interacting]
     Active Substance: CARISOPRODOL
     Dosage: ()
     Route: 065
  31. CARISOPRODOL. [Interacting]
     Active Substance: CARISOPRODOL
     Dosage: ()
     Route: 065
  32. CARISOPRODOL. [Interacting]
     Active Substance: CARISOPRODOL
     Dosage: ()
     Route: 065
  33. ALPRAZOLAM. [Interacting]
     Active Substance: ALPRAZOLAM
     Dosage: UNK ()
     Route: 065
  34. ALPRAZOLAM. [Interacting]
     Active Substance: ALPRAZOLAM
     Dosage: ()
     Route: 065
  35. ALPRAZOLAM. [Interacting]
     Active Substance: ALPRAZOLAM
     Dosage: ()
     Route: 065
  36. AMFETAMINE [Suspect]
     Active Substance: AMPHETAMINE
     Indication: SUBSTANCE ABUSE
     Dosage: ()
     Route: 065
  37. ZOLPIDEM [Interacting]
     Active Substance: ZOLPIDEM\ZOLPIDEM TARTRATE
     Dosage: ()
     Route: 048
  38. ZOLPIDEM [Interacting]
     Active Substance: ZOLPIDEM\ZOLPIDEM TARTRATE
     Dosage: ()
     Route: 048
  39. ZOLPIDEM [Interacting]
     Active Substance: ZOLPIDEM\ZOLPIDEM TARTRATE
     Dosage: ()
     Route: 048
  40. SERTRALINE [Interacting]
     Active Substance: SERTRALINE HYDROCHLORIDE
     Dosage: ()
     Route: 065
  41. SERTRALINE [Interacting]
     Active Substance: SERTRALINE HYDROCHLORIDE
     Dosage: ()
     Route: 065
  42. PARACETAMOL [Interacting]
     Active Substance: ACETAMINOPHEN
     Dosage: ()
     Route: 065
  43. PARACETAMOL [Interacting]
     Active Substance: ACETAMINOPHEN
     Dosage: UNK ()
     Route: 065
  44. NANDROLONE [Interacting]
     Active Substance: NANDROLONE
     Dosage: ()
     Route: 065
  45. NANDROLONE [Interacting]
     Active Substance: NANDROLONE
     Dosage: ()
     Route: 065
  46. NANDROLONE [Interacting]
     Active Substance: NANDROLONE
     Dosage: ()
     Route: 065
  47. NANDROLONE [Interacting]
     Active Substance: NANDROLONE
     Dosage: UNK ()
     Route: 065
  48. NANDROLONE [Interacting]
     Active Substance: NANDROLONE
     Dosage: ()
     Route: 065
  49. MORPHINE SULFATE. [Interacting]
     Active Substance: MORPHINE SULFATE
     Dosage: UNK ()
     Route: 065
  50. MORPHINE SULFATE. [Interacting]
     Active Substance: MORPHINE SULFATE
     Dosage: UNK ()
     Route: 065
  51. CODEINE PHOSPHATE [Interacting]
     Active Substance: CODEINE PHOSPHATE
     Dosage: UNK ()
     Route: 065
  52. ALPRAZOLAM. [Interacting]
     Active Substance: ALPRAZOLAM
     Dosage: ()
     Route: 065
  53. ALPRAZOLAM. [Interacting]
     Active Substance: ALPRAZOLAM
     Dosage: ()
     Route: 065
  54. XYREM [Interacting]
     Active Substance: SODIUM OXYBATE
     Indication: SUBSTANCE ABUSE
     Dosage: UNK ()
     Route: 065
  55. MORPHINE [Interacting]
     Active Substance: MORPHINE
     Indication: PRODUCT USED FOR UNKNOWN INDICATION
     Dosage: ()
     Route: 065
  56. ZOLPIDEM [Interacting]
     Active Substance: ZOLPIDEM\ZOLPIDEM TARTRATE
     Dosage: ()
     Route: 065
  57. ZOLPIDEM [Interacting]
     Active Substance: ZOLPIDEM\ZOLPIDEM TARTRATE
     Dosage: UNK ()
     Route: 048
  58. ZOLPIDEM [Interacting]
     Active Substance: ZOLPIDEM\ZOLPIDEM TARTRATE
     Dosage: UNK ()
     Route: 048
  59. ZOLPIDEM [Interacting]
     Active Substance: ZOLPIDEM\ZOLPIDEM TARTRATE
     Dosage: ()
     Route: 048
  60. SERTRALINE [Interacting]
     Active Substance: SERTRALINE HYDROCHLORIDE
     Dosage: ()
     Route: 065
  61. SERTRALINE [Interacting]
     Active Substance: SERTRALINE HYDROCHLORIDE
     Dosage: ()
     Route: 065
  62. SERTRALINE [Interacting]
     Active Substance: SERTRALINE HYDROCHLORIDE
     Dosage: UNK ()
     Route: 065
  63. PARACETAMOL [Interacting]
     Active Substance: ACETAMINOPHEN
     Dosage: UNK ()
     Route: 065
  64. PARACETAMOL [Interacting]
     Active Substance: ACETAMINOPHEN
     Dosage: ()
     Route: 065
  65. PARACETAMOL [Interacting]
     Active Substance: ACETAMINOPHEN
     Dosage: ()
     Route: 065
  66. NANDROLONE [Interacting]
     Active Substance: NANDROLONE
     Dosage: ()
     Route: 065
  67. CARISOPRODOL. [Interacting]
     Active Substance: CARISOPRODOL
     Dosage: UNK ()
     Route: 065
  68. MORPHINE SULFATE. [Interacting]
     Active Substance: MORPHINE SULFATE
     Dosage: UNK ()
     Route: 065
  69. CODEINE PHOSPHATE [Interacting]
     Active Substance: CODEINE PHOSPHATE
     Indication: PRODUCT USED FOR UNKNOWN INDICATION
     Dosage: ()
     Route: 065
  70. ALPRAZOLAM. [Interacting]
     Active Substance: ALPRAZOLAM
     Dosage: ()
     Route: 065
  71. AMPHETAMINE SULFATE. [Interacting]
     Active Substance: AMPHETAMINE SULFATE
     Dosage: ()
     Route: 065
  72. XYREM [Interacting]
     Active Substance: SODIUM OXYBATE
     Indication: PRODUCT USED FOR UNKNOWN INDICATION
     Dosage: UNK ()
     Route: 065
  73. DEXTROAMPHETAMINE SACCHARATE [Interacting]
     Active Substance: DEXTROAMPHETAMINE SACCHARATE
     Indication: PRODUCT USED FOR UNKNOWN INDICATION
  74. ZOLPIDEM [Interacting]
     Active Substance: ZOLPIDEM\ZOLPIDEM TARTRATE
     Dosage: ()
     Route: 048
  75. ZOLPIDEM [Interacting]
     Active Substance: ZOLPIDEM\ZOLPIDEM TARTRATE
     Dosage: ()
     Route: 048
  76. ZOLPIDEM [Interacting]
     Active Substance: ZOLPIDEM\ZOLPIDEM TARTRATE
     Dosage: UNK ()
     Route: 048
  77. SERTRALINE [Interacting]
     Active Substance: SERTRALINE HYDROCHLORIDE
     Dosage: ()
     Route: 065
  78. PARACETAMOL [Interacting]
     Active Substance: ACETAMINOPHEN
     Dosage: UNK ()
     Route: 065
  79. PARACETAMOL [Interacting]
     Active Substance: ACETAMINOPHEN
     Dosage: ()
     Route: 065
  80. PARACETAMOL [Interacting]
     Active Substance: ACETAMINOPHEN
     Dosage: ()
     Route: 065
  81. NANDROLONE [Interacting]
     Active Substance: NANDROLONE
     Dosage: ()
     Route: 065
  82. CARISOPRODOL. [Interacting]
     Active Substance: CARISOPRODOL
     Indication: PRODUCT USED FOR UNKNOWN INDICATION
     Dosage: ()
     Route: 065
  83. CARISOPRODOL. [Interacting]
     Active Substance: CARISOPRODOL
     Dosage: ()
     Route: 065
  84. CARISOPRODOL. [Interacting]
     Active Substance: CARISOPRODOL
     Dosage: ()
  85. CARISOPRODOL. [Interacting]
     Active Substance: CARISOPRODOL
     Dosage: UNK ()
     Route: 065
  86. CODEINE PHOSPHATE [Interacting]
     Active Substance: CODEINE PHOSPHATE
     Dosage: UNK ()
     Route: 065
  87. AMPHETAMINE SULFATE. [Interacting]
     Active Substance: AMPHETAMINE SULFATE
     Dosage: ()
     Route: 065
  88. GAMMA-HYDROXYBUTYRATE [Interacting]
     Active Substance: 4-HYDROXYBUTANOIC ACID
     Dosage: UNK
     Route: 065
  89. GAMMA-HYDROXYBUTYRIC ACID [Interacting]
     Active Substance: 4-HYDROXYBUTANOIC ACID
     Indication: PRODUCT USED FOR UNKNOWN INDICATION
     Dosage: ()
     Route: 065
  90. ZOLPIDEM [Interacting]
     Active Substance: ZOLPIDEM\ZOLPIDEM TARTRATE
     Dosage: UNK ()
     Route: 065
  91. SERTRALINE [Interacting]
     Active Substance: SERTRALINE HYDROCHLORIDE
     Dosage: UNK ()
     Route: 065
  92. PARACETAMOL [Interacting]
     Active Substance: ACETAMINOPHEN
     Dosage: ()
     Route: 065
  93. PARACETAMOL [Interacting]
     Active Substance: ACETAMINOPHEN
     Dosage: ()
     Route: 065
  94. NANDROLONE [Interacting]
     Active Substance: NANDROLONE
     Dosage: ()
     Route: 065
  95. CARISOPRODOL. [Interacting]
     Active Substance: CARISOPRODOL
     Dosage: ()
     Route: 065
  96. CARISOPRODOL. [Interacting]
     Active Substance: CARISOPRODOL
     Dosage: UNK ()
     Route: 065
  97. CODEINE PHOSPHATE [Interacting]
     Active Substance: CODEINE PHOSPHATE
     Dosage: UNK ()
     Route: 065
  98. ALPRAZOLAM. [Interacting]
     Active Substance: ALPRAZOLAM
     Dosage: ()
     Route: 065
  99. ALPRAZOLAM. [Interacting]
     Active Substance: ALPRAZOLAM
     Dosage: ()
     Route: 065
  100. ALPRAZOLAM. [Interacting]
     Active Substance: ALPRAZOLAM
     Dosage: ()
     Route: 065
  101. ALPRAZOLAM. [Interacting]
     Active Substance: ALPRAZOLAM
     Dosage: UNK ()
     Route: 065
  102. GAMMA-HYDROXYBUTYRATE [Interacting]
     Active Substance: 4-HYDROXYBUTANOIC ACID
     Dosage: ()
     Route: 065
  103. XYREM [Interacting]
     Active Substance: SODIUM OXYBATE
     Dosage: UNK ()
     Route: 065
  104. XYREM [Interacting]
     Active Substance: SODIUM OXYBATE
     Dosage: UNK ()
     Route: 048
  105. ZOLPIDEM [Interacting]
     Active Substance: ZOLPIDEM\ZOLPIDEM TARTRATE
     Dosage: ()
     Route: 065
  106. SERTRALINE [Interacting]
     Active Substance: SERTRALINE HYDROCHLORIDE
     Dosage: UNK ()
     Route: 065
  107. SERTRALINE [Interacting]
     Active Substance: SERTRALINE HYDROCHLORIDE
     Dosage: ()
     Route: 065
  108. PARACETAMOL [Interacting]
     Active Substance: ACETAMINOPHEN
     Dosage: ()
     Route: 065
  109. NANDROLONE [Interacting]
     Active Substance: NANDROLONE
     Dosage: UNK ()
     Route: 065
  110. NANDROLONE [Interacting]
     Active Substance: NANDROLONE
     Dosage: ()
     Route: 065
  111. NANDROLONE [Interacting]
     Active Substance: NANDROLONE
     Dosage: ()
  112. CARISOPRODOL. [Interacting]
     Active Substance: CARISOPRODOL
     Dosage: ()
     Route: 065
  113. CARISOPRODOL. [Interacting]
     Active Substance: CARISOPRODOL
     Dosage: ()
     Route: 065
  114. CODEINE PHOSPHATE [Interacting]
     Active Substance: CODEINE PHOSPHATE
     Dosage: UNK ()
     Route: 065
  115. CODEINE PHOSPHATE [Interacting]
     Active Substance: CODEINE PHOSPHATE
     Dosage: UNK ()
     Route: 065
  116. ALPRAZOLAM. [Interacting]
     Active Substance: ALPRAZOLAM
     Dosage: UNK ()
     Route: 065
  117. ALPRAZOLAM. [Interacting]
     Active Substance: ALPRAZOLAM
     Dosage: ()
     Route: 065
  118. AMPHETAMINE SULFATE. [Interacting]
     Active Substance: AMPHETAMINE SULFATE
     Dosage: ()
     Route: 065
  119. XYREM [Interacting]
     Active Substance: SODIUM OXYBATE
     Dosage: UNK ()
     Route: 048
  120. ZOLPIDEM [Interacting]
     Active Substance: ZOLPIDEM\ZOLPIDEM TARTRATE
     Dosage: UNK ()
     Route: 048
  121. SERTRALINE [Interacting]
     Active Substance: SERTRALINE HYDROCHLORIDE
     Indication: PRODUCT USED FOR UNKNOWN INDICATION
     Dosage: ()
     Route: 065
  122. SERTRALINE [Interacting]
     Active Substance: SERTRALINE HYDROCHLORIDE
     Dosage: ()
     Route: 065
  123. SERTRALINE [Interacting]
     Active Substance: SERTRALINE HYDROCHLORIDE
     Dosage: ()
     Route: 065
  124. PARACETAMOL [Interacting]
     Active Substance: ACETAMINOPHEN
     Dosage: ()
     Route: 065
  125. PARACETAMOL [Interacting]
     Active Substance: ACETAMINOPHEN
     Dosage: ()
     Route: 065
  126. NANDROLONE [Interacting]
     Active Substance: NANDROLONE
     Dosage: ()
     Route: 065
  127. NANDROLONE [Interacting]
     Active Substance: NANDROLONE
     Dosage: UNK ()
     Route: 065
  128. CARISOPRODOL. [Interacting]
     Active Substance: CARISOPRODOL
     Dosage: UNK ()
     Route: 065
  129. CARISOPRODOL. [Interacting]
     Active Substance: CARISOPRODOL
     Dosage: ()
     Route: 065
  130. CARISOPRODOL. [Interacting]
     Active Substance: CARISOPRODOL
     Dosage: ()
  131. MORPHINE SULFATE. [Interacting]
     Active Substance: MORPHINE SULFATE
     Dosage: UNK ()
     Route: 065
  132. ALPRAZOLAM. [Interacting]
     Active Substance: ALPRAZOLAM
     Dosage: ()
     Route: 065
  133. SODIUM OXYBATE. [Interacting]
     Active Substance: SODIUM OXYBATE
     Indication: SUBSTANCE ABUSE
  134. AMPHETAMINE SULFATE. [Interacting]
     Active Substance: AMPHETAMINE SULFATE
     Indication: SUBSTANCE ABUSE
     Dosage: ()
     Route: 065
  135. AMPHETAMINE SULFATE. [Interacting]
     Active Substance: AMPHETAMINE SULFATE
     Dosage: ()
     Route: 065
  136. XYREM [Interacting]
     Active Substance: SODIUM OXYBATE
     Dosage: UNK ()
     Route: 048
  137. OXYBATE SODIUM [Interacting]
     Active Substance: SODIUM OXYBATE
     Indication: SUBSTANCE ABUSE
     Dosage: ()
     Route: 048

REACTIONS (7)
  - Overdose [Fatal]
  - Death [Fatal]
  - Adverse drug reaction [Fatal]
  - No adverse event [Unknown]
  - Toxicity to various agents [Fatal]
  - Drug abuse [Fatal]
  - Drug interaction [Fatal]
